FAERS Safety Report 12603929 (Version 2)
Quarter: 2016Q3

REPORT INFORMATION
  Report Type: Report from Study
  Country: US (occurrence: US)
  Receive Date: 20160728
  Receipt Date: 20160812
  Transmission Date: 20161109
  Serious: Yes (Hospitalization)
  Sender: FDA-Public Use
  Company Number: US-ABBVIE-16K-163-1680948-00

PATIENT
  Age: 60 Year
  Sex: Female
  Weight: 41.77 kg

DRUGS (1)
  1. HUMIRA [Suspect]
     Active Substance: ADALIMUMAB
     Indication: CROHN^S DISEASE
     Route: 058
     Dates: start: 2004

REACTIONS (14)
  - Sepsis [Recovered/Resolved]
  - Acute kidney injury [Recovered/Resolved]
  - Malabsorption [Unknown]
  - Gastric haemorrhage [Unknown]
  - Hip fracture [Unknown]
  - Upper limb fracture [Unknown]
  - Urinary tract infection [Recovered/Resolved]
  - Wrist fracture [Unknown]
  - Fatigue [Recovered/Resolved]
  - Hypomagnesaemia [Recovered/Resolved]
  - Fall [Unknown]
  - Pyrexia [Recovered/Resolved]
  - Migraine [Not Recovered/Not Resolved]
  - Hypotension [Recovered/Resolved]

NARRATIVE: CASE EVENT DATE: 20131226
